FAERS Safety Report 9165031 (Version 1)
Quarter: 2013Q1

REPORT INFORMATION
  Report Type: Spontaneous
  Country: US (occurrence: US)
  Receive Date: 20130315
  Receipt Date: 20130315
  Transmission Date: 20140127
  Serious: Yes (Hospitalization, Other)
  Sender: FDA-Public Use
  Company Number: US-PFIZER INC-2013083755

PATIENT
  Age: 41 Year
  Sex: Female
  Weight: 81.63 kg

DRUGS (4)
  1. ETHINYL ESTRADIOL/NORGESTREL [Suspect]
     Indication: HORMONE LEVEL ABNORMAL
     Dosage: UNK
     Dates: start: 2007
  2. ETHINYL ESTRADIOL/NORGESTREL [Suspect]
     Indication: MENORRHAGIA
     Dosage: UNK, REDUCED DOSE
     Dates: end: 201302
  3. IRON [Suspect]
     Indication: ANAEMIA
     Dosage: UNK
  4. FOLIC ACID [Concomitant]
     Indication: ANAEMIA
     Dosage: UNK

REACTIONS (5)
  - Loss of consciousness [Unknown]
  - Dizziness [Unknown]
  - Blood count abnormal [Unknown]
  - Constipation [Unknown]
  - Abdominal discomfort [Unknown]
